FAERS Safety Report 4356217-8 (Version None)
Quarter: 2004Q2

REPORT INFORMATION
  Report Type: 
  Country: None (occurrence: None)
  Receive Date: 20040511
  Receipt Date: 20040405
  Transmission Date: 20050107
  Serious: Yes (Disabling)
  Sender: FDA-Public Use
  Company Number: US-MERCK-0404USA00481

PATIENT
  Age: 73 Year
  Sex: Female

DRUGS (5)
  1. FOSAMAX [Suspect]
     Indication: OSTEOPOROSIS
     Route: 048
     Dates: start: 20020602, end: 20040403
  2. ASPIRIN [Concomitant]
     Route: 065
  3. LANOXIN [Concomitant]
     Route: 065
  4. NADOLOL [Concomitant]
     Route: 065
  5. VITAMINS (UNSPECIFIED) [Concomitant]
     Route: 065

REACTIONS (2)
  - RASH [None]
  - SWELLING FACE [None]
